FAERS Safety Report 6500193-6 (Version None)
Quarter: 2009Q4

REPORT INFORMATION
  Report Type: 
  Country: None (occurrence: None)
  Receive Date: 20091214
  Receipt Date: 20091214
  Transmission Date: 20100525
  Serious: Yes (Life-Threatening, Hospitalization, Disabling, Congenital Anomaly, Other)
  Sender: FDA-Public Use
  Company Number: None

PATIENT
  Age: 6 Week
  Sex: Female
  Weight: 4.9896 kg

DRUGS (1)
  1. PROZAC [Suspect]
     Indication: DEPRESSION
     Dosage: 60MG QD PO  : 80MG QD PO
     Route: 048
     Dates: start: 20080101, end: 20090101

REACTIONS (5)
  - CARDIAC DISORDER [None]
  - CEREBRAL INFARCTION [None]
  - CONVULSION [None]
  - DRUG EXPOSURE VIA BREAST MILK [None]
  - MATERNAL DRUGS AFFECTING FOETUS [None]
